FAERS Safety Report 17375417 (Version 2)
Quarter: 2020Q2

REPORT INFORMATION
  Report Type: Spontaneous
  Country: US (occurrence: US)
  Receive Date: 20200205
  Receipt Date: 20200413
  Transmission Date: 20200713
  Serious: Yes (Death, Other)
  Sender: FDA-Public Use
  Company Number: US-PFIZER INC-2020051434

PATIENT
  Age: 27 Year
  Sex: Female

DRUGS (5)
  1. PROMETHAZINE [Concomitant]
     Active Substance: PROMETHAZINE HYDROCHLORIDE
     Indication: ABORTION INDUCED COMPLICATED
     Dosage: UNK
  2. MISOPROSTOL. [Suspect]
     Active Substance: MISOPROSTOL
     Indication: ABORTION INDUCED
     Dosage: 800 UG, UNK (800UG ONCE, FOR 30MINUTES, THEN SWALLOWED THE REMAINING TABLETS)
     Route: 002
     Dates: start: 20200103, end: 20200103
  3. MIFEPRISTONE [Suspect]
     Active Substance: MIFEPRISTONE
     Indication: ABORTION INDUCED
     Dosage: 200 MG, SINGLE (200 MG, ONCE, ORAL)
     Route: 048
     Dates: start: 20200102, end: 20200102
  4. IBUPROFEN. [Concomitant]
     Active Substance: IBUPROFEN
     Indication: ABORTION INDUCED COMPLICATED
     Dosage: UNK
  5. TYLENOL WITH CODEINE [Concomitant]
     Active Substance: ACETAMINOPHEN\CODEINE PHOSPHATE
     Indication: ABORTION INDUCED COMPLICATED
     Dosage: UNK

REACTIONS (3)
  - Pulmonary artery thrombosis [Fatal]
  - Off label use [Unknown]
  - Product use in unapproved indication [Unknown]

NARRATIVE: CASE EVENT DATE: 20200103
